FAERS Safety Report 7367851-5 (Version None)
Quarter: 2011Q1

REPORT INFORMATION
  Report Type: 
  Country: None (occurrence: None)
  Receive Date: 20110322
  Receipt Date: 20110317
  Transmission Date: 20110831
  Serious: Yes (Other)
  Sender: FDA-Public Use
  Company Number: GB-ABBOTT-11P-167-0712816-00

PATIENT
  Age: 23 Year
  Sex: Male
  Weight: 97.8 kg

DRUGS (2)
  1. HUMIRA [Suspect]
     Indication: CROHN'S DISEASE
     Dosage: 80 MG LOADING DOSE
     Route: 058
     Dates: start: 20100819, end: 20100819
  2. HUMIRA [Suspect]
     Route: 058
     Dates: end: 20110210

REACTIONS (5)
  - MUSCULAR WEAKNESS [None]
  - ASPARTATE AMINOTRANSFERASE INCREASED [None]
  - MYALGIA [None]
  - BLOOD CREATINE PHOSPHOKINASE INCREASED [None]
  - RENAL FAILURE [None]
